FAERS Safety Report 9271582 (Version 1)
Quarter: 2013Q2

REPORT INFORMATION
  Report Type: Spontaneous
  Country: US (occurrence: US)
  Receive Date: 20130506
  Receipt Date: 20130506
  Transmission Date: 20140414
  Serious: No
  Sender: FDA-Public Use
  Company Number: US-TEVA-402377USA

PATIENT
  Age: 67 Year
  Sex: Female
  Weight: 39.04 kg

DRUGS (4)
  1. PROAIR HFA [Suspect]
     Indication: DYSPNOEA
     Dosage: 2 PUFFS Q 6 HR PRN
     Dates: start: 20130419
  2. XANAX [Concomitant]
     Indication: ANXIETY
     Dosage: QHS
     Route: 048
  3. FOSAMAX [Concomitant]
     Indication: OSTEOPOROSIS
     Dosage: 10 MILLIGRAM DAILY;
     Route: 048
  4. VITAMIN D3 [Concomitant]
     Indication: MEDICAL DIET
     Dosage: 2000 IU (INTERNATIONAL UNIT) DAILY;
     Route: 048

REACTIONS (9)
  - Nausea [Not Recovered/Not Resolved]
  - Dehydration [Not Recovered/Not Resolved]
  - Heart rate increased [Not Recovered/Not Resolved]
  - Cough [Not Recovered/Not Resolved]
  - Rhinorrhoea [Not Recovered/Not Resolved]
  - Insomnia [Not Recovered/Not Resolved]
  - Dyspnoea [Not Recovered/Not Resolved]
  - Drug ineffective [Unknown]
  - Dizziness [Not Recovered/Not Resolved]
